FAERS Safety Report 6100263-0 (Version None)
Quarter: 2009Q1

REPORT INFORMATION
  Report Type: 
  Country: None (occurrence: None)
  Receive Date: 20090303
  Receipt Date: 20090219
  Transmission Date: 20090719
  Serious: Yes (Hospitalization, Other)
  Sender: FDA-Public Use
  Company Number: ID-PFIZER INC-2009173068

PATIENT

DRUGS (2)
  1. AMLODIPINE BESYLATE [Suspect]
     Dosage: 200 MG, SINGLE
     Route: 048
  2. XANAX [Suspect]
     Dosage: 5 MG, SINGLE

REACTIONS (4)
  - HYPOTENSION [None]
  - OVERDOSE [None]
  - SOMNOLENCE [None]
  - SUICIDE ATTEMPT [None]
